FAERS Safety Report 9370925 (Version 2)
Quarter: 2013Q3

REPORT INFORMATION
  Report Type: Report from Study
  Country: FR (occurrence: FR)
  Receive Date: 20130627
  Receipt Date: 20130712
  Transmission Date: 20140515
  Serious: Yes (Death)
  Sender: FDA-Public Use
  Company Number: FR-ROCHE-1241758

PATIENT
  Age: 64 Year
  Sex: Female

DRUGS (4)
  1. ZELBORAF [Suspect]
     Indication: MALIGNANT MELANOMA
     Route: 048
  2. HYDROCORTISONE [Concomitant]
     Dosage: 10 MG
     Route: 048
     Dates: start: 201211, end: 201305
  3. OMEPRAZOLE [Concomitant]
     Dosage: 10 MG
     Route: 048
     Dates: start: 201211, end: 201305
  4. INNOHEP [Concomitant]
     Dosage: 4500 IU
     Route: 065
     Dates: start: 201211, end: 201305

REACTIONS (1)
  - Diarrhoea [Fatal]
